FAERS Safety Report 4276418-7 (Version None)
Quarter: 2004Q1

REPORT INFORMATION
  Report Type: 
  Country: None (occurrence: None)
  Receive Date: 20040121
  Receipt Date: 20040121
  Transmission Date: 20041129
  Serious: Yes (Life-Threatening)
  Sender: FDA-Public Use
  Company Number: None

PATIENT
  Age: 49 Year
  Sex: Female
  Weight: 64.8644 kg

DRUGS (3)
  1. EFFEXOR XR [Suspect]
     Indication: ANGER
     Dosage: 37.5 2/PER DAY ORAL
     Route: 048
     Dates: start: 20031218, end: 20040120
  2. EFFEXOR XR [Suspect]
     Indication: ANXIETY
     Dosage: 37.5 2/PER DAY ORAL
     Route: 048
     Dates: start: 20031218, end: 20040120
  3. EFFEXOR XR [Suspect]
     Indication: DEPRESSION
     Dosage: 37.5 2/PER DAY ORAL
     Route: 048
     Dates: start: 20031218, end: 20040120

REACTIONS (8)
  - ASTHENIA [None]
  - CONFUSIONAL STATE [None]
  - DYSARTHRIA [None]
  - HYPERHIDROSIS [None]
  - MEDICATION ERROR [None]
  - PARAESTHESIA [None]
  - SYNCOPE [None]
  - VOMITING PROJECTILE [None]
